FAERS Safety Report 22123180 (Version 2)
Quarter: 2024Q1

REPORT INFORMATION
  Report Type: Spontaneous
  Country: US (occurrence: US)
  Receive Date: 20230322
  Receipt Date: 20240322
  Transmission Date: 20240410
  Serious: No
  Sender: FDA-Public Use
  Company Number: US-ASCENDIS PHARMA-2022US001375

PATIENT

DRUGS (3)
  1. SKYTROFA [Suspect]
     Active Substance: LONAPEGSOMATROPIN-TCGD
     Indication: Growth hormone deficiency
     Dosage: 4.3 MILLIGRAM, WEEKLY
     Route: 058
     Dates: start: 20220707
  2. VITAMIN D NOS [Concomitant]
     Active Substance: VITAMIN D NOS
     Indication: Product used for unknown indication
     Dosage: 1200 UNITED STATES PHARMACOPEIA UNIT
     Route: 048
  3. VITAMINS NOS [Concomitant]
     Active Substance: VITAMINS
     Indication: Product used for unknown indication
     Dosage: UNK, WEEKLY
     Route: 048
     Dates: start: 20191122

REACTIONS (4)
  - Tonsillar hypertrophy [Recovered/Resolved]
  - Injection site pain [Not Recovered/Not Resolved]
  - Injection site pruritus [Not Recovered/Not Resolved]
  - Injection site rash [Not Recovered/Not Resolved]

NARRATIVE: CASE EVENT DATE: 20221218
